FAERS Safety Report 8558258-3 (Version None)
Quarter: 2012Q3

REPORT INFORMATION
  Report Type: 
  Country: None (occurrence: None)
  Receive Date: 20120801
  Receipt Date: 20120718
  Transmission Date: 20120928
  Serious: Yes (Other)
  Sender: FDA-Public Use
  Company Number: GB-009507513-2012SP029726

PATIENT

DRUGS (14)
  1. BENDAMUSTINE HYDROCHLORIDE [Suspect]
     Dosage: 70 MG/M2, QD
     Dates: start: 20110711
  2. ALLOPURINOL SODIUM [Concomitant]
     Indication: PROPHYLAXIS
     Dosage: 1300 MG, QD
     Route: 065
  3. RAMIPRIL [Concomitant]
     Dosage: 5 MG, QD
     Route: 065
  4. OMEPRAZOLE [Concomitant]
     Indication: PROPHYLAXIS
     Dosage: 20 MG, QD
  5. BENDAMUSTINE HYDROCHLORIDE [Suspect]
     Indication: CHRONIC LYMPHOCYTIC LEUKAEMIA
     Dosage: 70 MG/M2, QD
     Dates: start: 20110613, end: 20110614
  6. BENDAMUSTINE HYDROCHLORIDE [Suspect]
     Dosage: 70 MG/M2, QD
     Dates: start: 20110809
  7. ENOXAPARIN SODIUM [Concomitant]
     Dosage: 100 MG, QD
     Route: 058
  8. SIMVASTATIN [Concomitant]
     Dosage: 20 MG, QD
     Route: 065
  9. ASPIRIN [Concomitant]
     Dosage: 75 MG, QD
     Route: 065
  10. FLUCONAZOLE [Concomitant]
     Indication: PROPHYLAXIS
     Dosage: 50 MG, QD
     Route: 065
  11. DEXAMETHASONE [Suspect]
     Indication: CHRONIC LYMPHOCYTIC LEUKAEMIA
     Dosage: 20 MG, QD
     Route: 065
     Dates: start: 20110602
  12. PRILOSEC [Concomitant]
     Indication: PROPHYLAXIS
     Dosage: 20 MG, QD
     Route: 065
  13. ACYCLOVIR [Concomitant]
     Indication: PROPHYLAXIS
     Dosage: 400 MG, TID
     Route: 065
  14. CIPROFLOXACIN HCL [Concomitant]
     Indication: PROPHYLAXIS
     Dosage: 250 MG, BID

REACTIONS (5)
  - CHILLS [None]
  - FLUSHING [None]
  - FEELING HOT [None]
  - MALAISE [None]
  - INFECTION [None]
